FAERS Safety Report 10164402 (Version 2)
Quarter: 2014Q2

REPORT INFORMATION
  Report Type: Spontaneous
  Country: US (occurrence: US)
  Receive Date: 20140510
  Receipt Date: 20140510
  Transmission Date: 20141212
  Serious: No
  Sender: FDA-Public Use
  Company Number: US-BRISTOL-MYERS SQUIBB COMPANY-20124392

PATIENT
  Age: 68 Year
  Sex: Female

DRUGS (1)
  1. BYETTA [Suspect]
     Indication: DIABETES MELLITUS
     Dosage: 0.02ML 2/1/D BEFORE A MEAL
     Route: 058
     Dates: start: 20140129

REACTIONS (1)
  - Overdose [Unknown]
